FAERS Safety Report 14173402 (Version 2)
Quarter: 2017Q4

REPORT INFORMATION
  Report Type: Report from Study
  Country: None (occurrence: NZ)
  Receive Date: 20171109
  Receipt Date: 20171112
  Transmission Date: 20180321
  Serious: Yes (Hospitalization, Other)
  Sender: FDA-Public Use
  Company Number: NZ-ABBVIE-17K-118-2153074-00

PATIENT
  Sex: Male
  Weight: 124 kg

DRUGS (1)
  1. HUMIRA [Suspect]
     Active Substance: ADALIMUMAB
     Indication: ANKYLOSING SPONDYLITIS
     Route: 058
     Dates: start: 20120124

REACTIONS (5)
  - Gallbladder operation [Unknown]
  - Procedural complication [Unknown]
  - Post procedural infection [Unknown]
  - Spondyloarthropathy [Unknown]
  - Weight decreased [Unknown]

NARRATIVE: CASE EVENT DATE: 2012
